FAERS Safety Report 5405736-1 (Version None)
Quarter: 2007Q3

REPORT INFORMATION
  Report Type: 
  Country: None (occurrence: None)
  Receive Date: 20070806
  Receipt Date: 20070725
  Transmission Date: 20080115
  Serious: Yes (Hospitalization)
  Sender: FDA-Public Use
  Company Number: CA-JNJFOC-20070601953

PATIENT
  Sex: Male
  Weight: 133.36 kg

DRUGS (9)
  1. REMICADE [Suspect]
     Route: 042
  2. REMICADE [Suspect]
     Dosage: FOURTH INFUSION
     Route: 042
  3. REMICADE [Suspect]
     Dosage: THIRD INFUSION
     Route: 042
  4. REMICADE [Suspect]
     Dosage: SECOND INFUSION
     Route: 042
  5. REMICADE [Suspect]
     Indication: DRUG USE FOR UNKNOWN INDICATION
     Dosage: INITIAL INFUSION
     Route: 042
  6. IMOVANE [Concomitant]
     Dosage: AT HS
  7. RABEPRAZOLE SODIUM [Concomitant]
  8. COUMADIN [Concomitant]
  9. PREXIGE [Concomitant]

REACTIONS (13)
  - ANXIETY [None]
  - ATRIAL FIBRILLATION [None]
  - DEEP VEIN THROMBOSIS [None]
  - DRUG INEFFECTIVE [None]
  - FALL [None]
  - HAEMATOMA [None]
  - METHICILLIN-RESISTANT STAPHYLOCOCCAL AUREUS TEST POSITIVE [None]
  - MUSCULOSKELETAL CHEST PAIN [None]
  - PHLEBITIS [None]
  - PLEURAL EFFUSION [None]
  - PNEUMONIA [None]
  - RESPIRATORY FAILURE [None]
  - RESPIRATORY TRACT INFECTION [None]
